FAERS Safety Report 13837172 (Version 1)
Quarter: 2017Q3

REPORT INFORMATION
  Report Type: Spontaneous
  Country: US (occurrence: US)
  Receive Date: 20170804
  Receipt Date: 20170804
  Transmission Date: 20171127
  Serious: No
  Sender: FDA-Public Use
  Company Number: US-ROCHE-781524

PATIENT
  Sex: Female

DRUGS (1)
  1. BONIVA [Suspect]
     Active Substance: IBANDRONATE SODIUM
     Indication: PRODUCT USED FOR UNKNOWN INDICATION
     Dosage: DOSE AND FREQUENCY NOT PROVIDED
     Route: 065

REACTIONS (10)
  - Weight increased [Unknown]
  - Dysphagia [Unknown]
  - Speech disorder [Unknown]
  - Headache [Unknown]
  - Lacrimal disorder [Unknown]
  - Dyspnoea [Unknown]
  - Abdominal discomfort [Unknown]
  - Dry mouth [Unknown]
  - Unevaluable event [Unknown]
  - Chest discomfort [Unknown]
